FAERS Safety Report 5030003-8 (Version None)
Quarter: 2006Q2

REPORT INFORMATION
  Report Type: 
  Country: None (occurrence: None)
  Receive Date: 20060504
  Receipt Date: 20051212
  Transmission Date: 20061013
  Serious: No
  Sender: FDA-Public Use
  Company Number: 200513040BWH

PATIENT
  Sex: 0

DRUGS (3)
  1. LEVITRA [Suspect]
     Dosage: SEE IMAGE
     Route: 048
  2. ORAL HYPOGLYCEMICS [Concomitant]
  3. ANTIHYPERTENSIVES [Concomitant]

REACTIONS (1)
  - HEADACHE [None]
